FAERS Safety Report 5360880-2 (Version None)
Quarter: 2007Q2

REPORT INFORMATION
  Report Type: 
  Country: None (occurrence: None)
  Receive Date: 20070530
  Receipt Date: 20070208
  Transmission Date: 20071010
  Serious: No
  Sender: FDA-Public Use
  Company Number: 2007PV029826

PATIENT
  Age: 69 Year
  Sex: Female
  Weight: 92.0802 kg

DRUGS (15)
  1. BYETTA [Suspect]
     Indication: DIABETES MELLITUS NON-INSULIN-DEPENDENT
     Dosage: 10;5 MCG;BID;SC
     Route: 058
     Dates: start: 20070101, end: 20070101
  2. BYETTA [Suspect]
     Indication: DIABETES MELLITUS NON-INSULIN-DEPENDENT
     Dosage: 10;5 MCG;BID;SC
     Route: 058
     Dates: start: 20070101
  3. LANTUS [Concomitant]
  4. STARLIX [Concomitant]
  5. METFORMIN HCL [Concomitant]
  6. DILTIAZEM [Concomitant]
  7. COUMADIN [Concomitant]
  8. POTASSIUM CHLORIDE [Concomitant]
  9. LIPITOR [Concomitant]
  10. CALCIUM CHLORIDE [Concomitant]
  11. LISINOPRIL [Concomitant]
  12. SOLATOL [Concomitant]
  13. WATER PILL [Concomitant]
  14. BONIVA [Concomitant]
  15. OMACOR [Concomitant]

REACTIONS (4)
  - ABDOMINAL DISTENSION [None]
  - ERUCTATION [None]
  - FLATULENCE [None]
  - WEIGHT DECREASED [None]
